FAERS Safety Report 22193104 (Version 1)
Quarter: 2023Q2

REPORT INFORMATION
  Report Type: Spontaneous
  Country: US (occurrence: None)
  Receive Date: 20230410
  Receipt Date: 20230410
  Transmission Date: 20230722
  Serious: No
  Sender: FDA-Public Use
  Company Number: None

PATIENT
  Age: 67 Year
  Sex: Male
  Weight: 90.99 kg

DRUGS (9)
  1. VOTRIENT [Suspect]
     Active Substance: PAZOPANIB HYDROCHLORIDE
     Indication: Retroperitoneal cancer
     Dosage: FREQUENCY : DAILY;?
     Route: 048
  2. DILAUDID [Concomitant]
     Active Substance: HYDROMORPHONE HYDROCHLORIDE
  3. FLUTICSONE [Concomitant]
  4. FOLIC ACID [Concomitant]
     Active Substance: FOLIC ACID
  5. GABAPENTIN [Concomitant]
  6. LEVETIRACETAM [Concomitant]
  7. OYSTER SHELL CALCIUM/VITMAIN D [Concomitant]
  8. TYLENOL [Concomitant]
  9. XARELTO [Concomitant]

REACTIONS (1)
  - Herpes zoster [None]
